FAERS Safety Report 16744383 (Version 1)
Quarter: 2019Q3

REPORT INFORMATION
  Report Type: Spontaneous
  Country: US (occurrence: US)
  Receive Date: 20190827
  Receipt Date: 20190827
  Transmission Date: 20191005
  Serious: No
  Sender: FDA-Public Use
  Company Number: US-ASTRAZENECA-2019SF18792

PATIENT
  Sex: Female

DRUGS (9)
  1. BISCODOL [Concomitant]
     Indication: CONSTIPATION
  2. SENOKOT [Concomitant]
     Active Substance: SENNOSIDES
     Indication: CONSTIPATION
  3. MIRALAX [Concomitant]
     Active Substance: POLYETHYLENE GLYCOL 3350
     Indication: CONSTIPATION
  4. MOVANTIK [Suspect]
     Active Substance: NALOXEGOL OXALATE
     Indication: CONSTIPATION
     Dosage: DAILY
     Route: 048
  5. MORPHINE [Concomitant]
     Active Substance: MORPHINE
     Indication: PAIN
     Route: 037
  6. BACLOFIN [Concomitant]
     Route: 037
  7. BUPIVACAINE. [Concomitant]
     Active Substance: BUPIVACAINE
     Indication: PAIN
     Route: 037
  8. COLACE [Concomitant]
     Active Substance: DOCUSATE SODIUM
     Indication: CONSTIPATION
  9. LACTULOSE. [Concomitant]
     Active Substance: LACTULOSE
     Indication: CONSTIPATION
     Dosage: AS REQUIRED

REACTIONS (6)
  - Abdominal pain upper [Unknown]
  - Nervous system disorder [Unknown]
  - Drug ineffective [Unknown]
  - Complex regional pain syndrome [Unknown]
  - Faecaloma [Unknown]
  - Abdominal distension [Unknown]
